FAERS Safety Report 6912337-2 (Version None)
Quarter: 2010Q3

REPORT INFORMATION
  Report Type: 
  Country: None (occurrence: None)
  Receive Date: 20100806
  Receipt Date: 20100802
  Transmission Date: 20110219
  Serious: Yes (Hospitalization, Other)
  Sender: FDA-Public Use
  Company Number: BR-GENENTECH-300034

PATIENT
  Age: 73 Year
  Sex: Female
  Weight: 58 kg

DRUGS (2)
  1. LUCENTIS [Suspect]
     Indication: MACULAR DEGENERATION
     Dosage: 5 UNK, UNK
     Route: 031
  2. AVASTIN [Suspect]
     Indication: MACULAR DEGENERATION

REACTIONS (3)
  - BLINDNESS [None]
  - CATARACT OPERATION [None]
  - DRUG INEFFECTIVE [None]
